FAERS Safety Report 25934467 (Version 1)
Quarter: 2025Q4

REPORT INFORMATION
  Report Type: Spontaneous
  Country: EU (occurrence: EU)
  Receive Date: 20251017
  Receipt Date: 20251017
  Transmission Date: 20260117
  Serious: Yes (Other)
  Sender: NOVARTIS
  Company Number: EU-002147023-NVSC2024CZ229415

PATIENT
  Age: 42 Year

DRUGS (11)
  1. NILOTINIB [Suspect]
     Active Substance: NILOTINIB
     Indication: Chronic myeloid leukaemia
     Dosage: 600 MG, QD
     Route: 065
     Dates: start: 201410, end: 2015
  2. NILOTINIB [Suspect]
     Active Substance: NILOTINIB
     Dosage: 300 MG, QD
     Route: 065
     Dates: start: 201512, end: 2017
  3. ASCIMINIB [Suspect]
     Active Substance: ASCIMINIB
     Indication: Chronic myeloid leukaemia
     Dosage: 40 MG, BID
     Route: 065
     Dates: start: 202301
  4. DASATINIB [Suspect]
     Active Substance: DASATINIB
     Indication: Chronic myeloid leukaemia
     Dosage: UNK
     Route: 065
  5. DASATINIB [Suspect]
     Active Substance: DASATINIB
     Dosage: UNK, QD (80 AND 60 MG)
     Route: 065
     Dates: end: 2019
  6. DASATINIB [Suspect]
     Active Substance: DASATINIB
     Dosage: 60 MG, QD (TRANSIENTLY WITH A WEEKEND BREAK)
     Route: 065
     Dates: start: 2019
  7. DASATINIB [Suspect]
     Active Substance: DASATINIB
     Dosage: 80 MG
     Route: 065
     Dates: start: 202001
  8. DASATINIB [Suspect]
     Active Substance: DASATINIB
     Dosage: 100 MG
     Route: 065
     Dates: end: 202012
  9. PONATINIB [Suspect]
     Active Substance: PONATINIB
     Indication: Chronic myeloid leukaemia
     Dosage: 30 MG, QD
     Route: 065
     Dates: start: 202012, end: 202106
  10. PONATINIB [Suspect]
     Active Substance: PONATINIB
     Dosage: 15 MG, QD
     Route: 065
     Dates: start: 202106, end: 202110
  11. PONATINIB [Suspect]
     Active Substance: PONATINIB
     Dosage: 30 MG
     Route: 065
     Dates: start: 202110

REACTIONS (10)
  - Thrombocytopenia [Recovered/Resolved]
  - Blood bilirubin increased [Recovered/Resolved]
  - Cytogenetic analysis abnormal [Recovered/Resolved]
  - Thrombocytopenia [Recovered/Resolved]
  - Amylase increased [Recovered/Resolved]
  - Lipase increased [Recovered/Resolved]
  - Glucose tolerance impaired [Unknown]
  - Therapy non-responder [Recovered/Resolved]
  - Therapy non-responder [Recovered/Resolved]
  - Therapy partial responder [Recovered/Resolved]

NARRATIVE: CASE EVENT DATE: 20170101
